FAERS Safety Report 10948042 (Version 1)
Quarter: 2015Q1

REPORT INFORMATION
  Report Type: Spontaneous
  Country: US (occurrence: US)
  Receive Date: 20150324
  Receipt Date: 20150324
  Transmission Date: 20150721
  Serious: No
  Sender: FDA-Public Use
  Company Number: US-009507513-1503USA009744

PATIENT
  Sex: Male

DRUGS (2)
  1. NASONEX [Suspect]
     Active Substance: MOMETASONE FUROATE
     Dosage: TWO SPRAYS PER DAY
     Route: 045
  2. NASONEX [Suspect]
     Active Substance: MOMETASONE FUROATE
     Dosage: ONE SPRAY PER DAY
     Route: 045

REACTIONS (6)
  - Laryngitis [Unknown]
  - Euphoric mood [Unknown]
  - Drug dose omission [Unknown]
  - Underdose [Unknown]
  - Product quality issue [Unknown]
  - Cough [Unknown]

NARRATIVE: CASE EVENT DATE: 20150304
